FAERS Safety Report 20523259 (Version 1)
Quarter: 2022Q1

REPORT INFORMATION
  Report Type: Spontaneous
  Country: US (occurrence: US)
  Receive Date: 20220227
  Receipt Date: 20220227
  Transmission Date: 20220424
  Serious: No
  Sender: FDA-Public Use
  Company Number: US-AMGEN-USASP2022028235

PATIENT
  Age: 63 Year
  Sex: Female

DRUGS (1)
  1. REPATHA [Suspect]
     Active Substance: EVOLOCUMAB
     Indication: Product used for unknown indication
     Dosage: UNK
     Route: 065

REACTIONS (6)
  - Chronic sinusitis [Unknown]
  - Lip dry [Unknown]
  - Nasal discomfort [Unknown]
  - Oral disorder [Unknown]
  - Oropharyngeal pain [Unknown]
  - Rash [Unknown]

NARRATIVE: CASE EVENT DATE: 20220207
